FAERS Safety Report 18029455 (Version 1)
Quarter: 2020Q3

REPORT INFORMATION
  Report Type: Spontaneous
  Country: IN (occurrence: IN)
  Receive Date: 20200716
  Receipt Date: 20200716
  Transmission Date: 20201103
  Serious: Yes (Life-Threatening, Hospitalization, Other)
  Sender: FDA-Public Use
  Company Number: IN-TORRENT-00002549

PATIENT
  Age: 22 Year
  Sex: Female

DRUGS (3)
  1. CARBAMAZEPINE. [Suspect]
     Active Substance: CARBAMAZEPINE
     Indication: GENERALISED TONIC-CLONIC SEIZURE
  2. LEVETIRACETAM. [Interacting]
     Active Substance: LEVETIRACETAM
     Indication: GENERALISED TONIC-CLONIC SEIZURE
     Dosage: 500 MG BD
  3. PHENYTOIN. [Concomitant]
     Active Substance: PHENYTOIN
     Indication: GENERALISED TONIC-CLONIC SEIZURE
     Dosage: 2.5 YEARS

REACTIONS (7)
  - Stevens-Johnson syndrome [Recovering/Resolving]
  - Drug level increased [Recovering/Resolving]
  - Toxicity to various agents [Recovering/Resolving]
  - Drug interaction [Recovering/Resolving]
  - Odynophagia [Recovering/Resolving]
  - Pharyngitis [Recovering/Resolving]
  - Stomatitis [Recovering/Resolving]
